FAERS Safety Report 21945269 (Version 1)
Quarter: 2023Q1

REPORT INFORMATION
  Report Type: Spontaneous
  Country: US (occurrence: US)
  Receive Date: 20230202
  Receipt Date: 20230202
  Transmission Date: 20230418
  Serious: Yes (Hospitalization, Other)
  Sender: FDA-Public Use
  Company Number: US-SA-2023SA035471

PATIENT
  Age: 57 Year
  Sex: Male

DRUGS (7)
  1. OXALIPLATIN [Suspect]
     Active Substance: OXALIPLATIN
     Indication: Oesophageal adenocarcinoma stage IV
     Dosage: UNK UNK, QCY (EVERY TWO WEEKS)
  2. PREDNISONE [Suspect]
     Active Substance: PREDNISONE
     Indication: Toxic epidermal necrolysis
  3. PREDNISONE [Suspect]
     Active Substance: PREDNISONE
     Dosage: UNK (TAPER)
  4. PREDNISONE [Suspect]
     Active Substance: PREDNISONE
     Dosage: UNK, HIGH DOSE STEROID
  5. LEUCOVORIN [Suspect]
     Active Substance: LEUCOVORIN
     Indication: Oesophageal adenocarcinoma stage IV
     Dosage: UNK UNK, QCY(EVERY TWO WEEKS)
  6. FLUOROURACIL [Suspect]
     Active Substance: FLUOROURACIL
     Indication: Oesophageal adenocarcinoma stage IV
     Dosage: UNK UNK, QCY(EVERY TWO WEEKS)
  7. NIVOLUMAB [Suspect]
     Active Substance: NIVOLUMAB
     Indication: Oesophageal adenocarcinoma stage IV
     Dosage: UNK UNK, QCY(EVERY TWO WEEKS)

REACTIONS (10)
  - Toxic epidermal necrolysis [Unknown]
  - Rash [Unknown]
  - Rash erythematous [Unknown]
  - Rash pruritic [Unknown]
  - Blister [Unknown]
  - Skin exfoliation [Unknown]
  - Epidermal necrosis [Unknown]
  - Rash [Unknown]
  - Rash [Unknown]
  - Rebound effect [Unknown]
